FAERS Safety Report 7539452-7 (Version None)
Quarter: 2011Q2

REPORT INFORMATION
  Report Type: 
  Country: None (occurrence: None)
  Receive Date: 20110610
  Receipt Date: 20110609
  Transmission Date: 20111010
  Serious: Yes (Other)
  Sender: FDA-Public Use
  Company Number: IT-PFIZER INC-2011125977

PATIENT
  Age: 49 Year
  Sex: Female

DRUGS (2)
  1. DULOXETINE [Concomitant]
     Dosage: UNK
     Route: 048
     Dates: start: 20110223, end: 20110608
  2. LYRICA [Suspect]
     Indication: DIABETIC NEUROPATHY
     Dosage: 150 MG, 1X/DAY
     Route: 048
     Dates: start: 20110523, end: 20110606

REACTIONS (1)
  - NEUTROPENIA [None]
